FAERS Safety Report 15487095 (Version 1)
Quarter: 2018Q4

REPORT INFORMATION
  Report Type: Spontaneous
  Country: US (occurrence: US)
  Receive Date: 20181010
  Receipt Date: 20181010
  Transmission Date: 20190205
  Serious: No
  Sender: FDA-Public Use
  Company Number: None

PATIENT
  Age: 18 Year
  Sex: Female

DRUGS (2)
  1. PORTIA [Suspect]
     Active Substance: ETHINYL ESTRADIOL\LEVONORGESTREL
     Indication: MENORRHAGIA
     Route: 048
     Dates: start: 20180424, end: 20181009
  2. AZITHROMYCIN 250 MG [Concomitant]
     Active Substance: AZITHROMYCIN ANHYDROUS
     Dates: start: 20180415, end: 20180418

REACTIONS (4)
  - Menorrhagia [None]
  - Rash [None]
  - Breast tenderness [None]
  - Muscle spasms [None]

NARRATIVE: CASE EVENT DATE: 20180424
